FAERS Safety Report 4765254-0 (Version None)
Quarter: 2005Q3

REPORT INFORMATION
  Report Type: 
  Country: None (occurrence: None)
  Receive Date: 20050906
  Receipt Date: 20050810
  Transmission Date: 20060218
  Serious: Yes (Hospitalization, Other)
  Sender: FDA-Public Use
  Company Number: EWC041241838

PATIENT
  Age: 9 Year
  Sex: Male
  Weight: 20 kg

DRUGS (2)
  1. ATOMOXETINE HYDROCHLORIDE [Suspect]
     Indication: ATTENTION DEFICIT/HYPERACTIVITY DISORDER
     Dosage: 1.2 MG OTHER
     Route: 050
     Dates: start: 20041215
  2. RISPERIDONE [Concomitant]

REACTIONS (23)
  - ABNORMAL BEHAVIOUR [None]
  - ALANINE AMINOTRANSFERASE INCREASED [None]
  - ALBUMIN URINE [None]
  - ANOREXIA [None]
  - ASPARTATE AMINOTRANSFERASE INCREASED [None]
  - BLOOD BILIRUBIN INCREASED [None]
  - BLOOD SODIUM DECREASED [None]
  - CONDITION AGGRAVATED [None]
  - CONSTIPATION [None]
  - DRY MOUTH [None]
  - EATING DISORDER [None]
  - FLUID INTAKE REDUCED [None]
  - FORMICATION [None]
  - GASTROENTERITIS VIRAL [None]
  - INSOMNIA [None]
  - NAUSEA [None]
  - PALPITATIONS [None]
  - PRURITUS [None]
  - PSYCHOMOTOR HYPERACTIVITY [None]
  - RESTLESSNESS [None]
  - SLEEP DISORDER [None]
  - VOMITING [None]
  - WEIGHT INCREASED [None]
